FAERS Safety Report 21948562 (Version 2)
Quarter: 2023Q1

REPORT INFORMATION
  Report Type: Report from Study
  Country: US (occurrence: US)
  Receive Date: 20230203
  Receipt Date: 20230219
  Transmission Date: 20230418
  Serious: Yes (Death)
  Sender: FDA-Public Use
  Company Number: US-BIOGEN-2023BI01184986

PATIENT
  Sex: Male

DRUGS (3)
  1. TYSABRI [Suspect]
     Active Substance: NATALIZUMAB
     Indication: Multiple sclerosis
     Dosage: INFUSED OVER 1 HOUR
     Route: 050
     Dates: start: 20070927, end: 20140220
  2. TYSABRI [Suspect]
     Active Substance: NATALIZUMAB
     Dosage: INFUSION 1 HOUR
     Route: 050
     Dates: start: 20180425, end: 20221213
  3. TYSABRI [Suspect]
     Active Substance: NATALIZUMAB
     Route: 050
     Dates: start: 20200824, end: 20221213

REACTIONS (1)
  - Death [Fatal]
